FAERS Safety Report 5948300-8 (Version None)
Quarter: 2008Q4

REPORT INFORMATION
  Report Type: 
  Country: None (occurrence: None)
  Receive Date: 20081110
  Receipt Date: 20081110
  Transmission Date: 20090506
  Serious: No
  Sender: FDA-Public Use
  Company Number: None

PATIENT
  Age: 34 Year
  Sex: Male

DRUGS (11)
  1. ATORVASTATIN CALCIUM [Suspect]
     Indication: HYPERCHOLESTEROLAEMIA
     Dosage: 20 MG QHS PO
     Route: 048
     Dates: start: 20020401, end: 20040101
  2. PREDNISONE TAB [Concomitant]
  3. FAMOTIDINE [Concomitant]
  4. HYOSCYAMINE [Concomitant]
  5. CETIRIZINE HYDROCHLORIDE [Concomitant]
  6. PSEUDOEPHEDRINE HYDROCHLORIDE [Concomitant]
  7. MOXIFLOXACIN HCL [Suspect]
  8. BUDESONIDE -ENTOCORT-EC- [Concomitant]
  9. BUDESONIDE -RHINOCORT- [Concomitant]
  10. DIPHENOXYLATE HCL + ATROPINE SULFATE [Concomitant]
  11. LOSARTAN POTASSIUM AND HYDROCHLOROTHIAZIDE [Suspect]

REACTIONS (2)
  - DEAFNESS [None]
  - TINNITUS [None]
